FAERS Safety Report 9445938 (Version 1)
Quarter: 2013Q3

REPORT INFORMATION
  Report Type: Spontaneous
  Country: US (occurrence: US)
  Receive Date: 20130807
  Receipt Date: 20130807
  Transmission Date: 20140515
  Serious: No
  Sender: FDA-Public Use
  Company Number: US-TEVA-423222USA

PATIENT
  Age: 57 Year
  Sex: Male
  Weight: 95.34 kg

DRUGS (4)
  1. QVAR [Suspect]
     Indication: ASTHMA
     Dates: start: 2009
  2. LISINOPRIL [Concomitant]
     Indication: HYPERTENSION
  3. ASPIRIN [Concomitant]
     Indication: CARDIAC DISORDER
  4. PRO-AIR [Concomitant]
     Indication: ASTHMA

REACTIONS (3)
  - Gout [Unknown]
  - Prostatic specific antigen increased [Not Recovered/Not Resolved]
  - Asthma [Not Recovered/Not Resolved]
